FAERS Safety Report 25798597 (Version 3)
Quarter: 2025Q4

REPORT INFORMATION
  Report Type: Report from Study
  Country: JP (occurrence: JP)
  Receive Date: 20250913
  Receipt Date: 20251225
  Transmission Date: 20260118
  Serious: Yes (Hospitalization, Other)
  Sender: ABBVIE
  Company Number: JP-TAKEDA-2024TJP011790

PATIENT
  Age: 71 Year
  Sex: Male
  Weight: 70 kg

DRUGS (2)
  1. LEUPROLIDE ACETATE [Suspect]
     Active Substance: LEUPROLIDE ACETATE
     Indication: Bulbospinal muscular atrophy congenital
     Dosage: 11.25 MILLIGRAM, Q3MONTHS
     Route: 058
     Dates: start: 20180628
  2. CARBOCISTEINE CO [Concomitant]
     Indication: Bronchitis chronic
     Dosage: 1500 MILLIGRAM
     Route: 065
     Dates: start: 20220315

REACTIONS (7)
  - Pneumonia aspiration [Recovered/Resolved]
  - Bronchitis chronic [Recovering/Resolving]
  - Hypertonic bladder [Recovering/Resolving]
  - Gastritis [Recovered/Resolved]
  - Heat illness [Recovered/Resolved]
  - Fall [Recovered/Resolved]
  - Rib fracture [Recovered/Resolved]

NARRATIVE: CASE EVENT DATE: 20201028
